FAERS Safety Report 8789510 (Version 1)
Quarter: 2012Q4

REPORT INFORMATION
  Report Type: Spontaneous
  Country: US (occurrence: None)
  Receive Date: 20120910
  Receipt Date: 20120910
  Transmission Date: 20130627
  Serious: Yes (Life-Threatening, Hospitalization)
  Sender: FDA-Public Use
  Company Number: None

PATIENT
  Age: 8 Year
  Sex: Female
  Weight: 9 kg

DRUGS (4)
  1. LONAFARNIB [Suspect]
     Indication: PROGERIA
     Route: 048
     Dates: start: 20070622
  2. PRAVASTATIN [Suspect]
     Route: 048
     Dates: start: 20090915
  3. ASPIRIN [Concomitant]
  4. ERGOCALCIFEROL [Concomitant]

REACTIONS (5)
  - Pain [None]
  - Vomiting [None]
  - Mental status changes [None]
  - Extradural haematoma [None]
  - Head injury [None]
